FAERS Safety Report 7397105-2 (Version None)
Quarter: 2011Q2

REPORT INFORMATION
  Report Type: 
  Country: None (occurrence: None)
  Receive Date: 20110406
  Receipt Date: 20110315
  Transmission Date: 20111010
  Serious: Yes (Other)
  Sender: FDA-Public Use
  Company Number: A0918297A

PATIENT
  Age: 75 Year
  Sex: Female

DRUGS (5)
  1. DILTIAZEM HCL [Concomitant]
  2. PLAQUENIL [Concomitant]
  3. OXYGEN [Concomitant]
  4. ADVAIR DISKUS 100/50 [Suspect]
     Indication: ASTHMA
     Dosage: 1PUFF PER DAY
     Route: 055
     Dates: start: 20110226, end: 20110227
  5. METHOTREXATE [Concomitant]

REACTIONS (4)
  - DRUG INEFFECTIVE [None]
  - ASTHMA [None]
  - DYSPNOEA [None]
  - PALPITATIONS [None]
